FAERS Safety Report 4800525-0 (Version None)
Quarter: 2005Q4

REPORT INFORMATION
  Report Type: 
  Country: None (occurrence: None)
  Receive Date: 20051013
  Receipt Date: 20050926
  Transmission Date: 20060501
  Serious: Yes (Hospitalization)
  Sender: FDA-Public Use
  Company Number: FR_050907217

PATIENT
  Age: 70 Year
  Sex: Female

DRUGS (1)
  1. FORTEO [Suspect]
     Indication: OSTEOPOROSIS
     Dosage: 20 UG DAY
     Dates: start: 20050401, end: 20050912

REACTIONS (5)
  - DRUG INEFFECTIVE [None]
  - EXOSTOSIS [None]
  - INTERVERTEBRAL DISC CALCIFICATION [None]
  - INTERVERTEBRAL DISC PROTRUSION [None]
  - SCIATICA [None]
